FAERS Safety Report 9931354 (Version 1)
Quarter: 2014Q1

REPORT INFORMATION
  Report Type: Spontaneous
  Country: PL (occurrence: PL)
  Receive Date: 20140228
  Receipt Date: 20140228
  Transmission Date: 20141002
  Serious: Yes (Life-Threatening, Other)
  Sender: FDA-Public Use
  Company Number: PL-ACCORD-022081

PATIENT
  Age: 64 Year
  Sex: Female
  Weight: 71 kg

DRUGS (3)
  1. FLUOROURACIL [Suspect]
     Indication: BREAST CANCER
     Dates: start: 20140108
  2. DOXORUBICIN [Suspect]
     Indication: BREAST CANCER
     Dosage: ADRIAMYCIN
     Dates: start: 20140108
  3. CYCLOPHOSPHAMIDE/CYCLOPHOSPHAMIDE MONOHYDRATE [Suspect]
     Indication: BREAST CANCER
     Dates: start: 20140108

REACTIONS (2)
  - Neutropenia [Recovering/Resolving]
  - Lymphopenia [Recovering/Resolving]
